FAERS Safety Report 5404154-X (Version None)
Quarter: 2007Q3

REPORT INFORMATION
  Report Type: 
  Country: None (occurrence: None)
  Receive Date: 20070802
  Receipt Date: 20070727
  Transmission Date: 20080115
  Serious: Yes (Life-Threatening, Hospitalization)
  Sender: FDA-Public Use
  Company Number: JP-MERCK-0707USA01877

PATIENT
  Age: 78 Year
  Sex: Female
  Weight: 70 kg

DRUGS (10)
  1. HYZAAR [Suspect]
     Indication: HYPERTENSION
     Route: 048
     Dates: start: 20070529, end: 20070620
  2. HYZAAR [Suspect]
     Indication: VENTRICULAR FAILURE
     Route: 048
     Dates: start: 20070529, end: 20070620
  3. TANATRIL [Suspect]
     Indication: HYPERTENSION
     Route: 048
     Dates: start: 20070529, end: 20070620
  4. TANATRIL [Suspect]
     Indication: VENTRICULAR FAILURE
     Route: 048
     Dates: start: 20070529, end: 20070620
  5. VASOTEC [Concomitant]
     Route: 048
     Dates: end: 20070620
  6. LASIX [Concomitant]
     Route: 065
  7. ALDACTONE [Concomitant]
     Route: 048
  8. ALLOPURINOL [Concomitant]
     Route: 048
  9. LANIRAPID [Concomitant]
     Route: 048
  10. NITRODERM [Concomitant]
     Route: 065

REACTIONS (3)
  - CARDIAC FAILURE [None]
  - HYPERKALAEMIA [None]
  - PULMONARY CONGESTION [None]
